FAERS Safety Report 15757384 (Version 2)
Quarter: 2019Q1

REPORT INFORMATION
  Report Type: Spontaneous
  Country: US (occurrence: US)
  Receive Date: 20181224
  Receipt Date: 20190105
  Transmission Date: 20190417
  Serious: No
  Sender: FDA-Public Use
  Company Number: US-TEVA-2018-US-986134

PATIENT
  Sex: Female
  Weight: 95.34 kg

DRUGS (4)
  1. GABAPENTIN ACTAVIS [Suspect]
     Active Substance: GABAPENTIN
     Indication: MOBILITY DECREASED
  2. GABAPENTIN ACTAVIS [Suspect]
     Active Substance: GABAPENTIN
     Indication: MUSCULOSKELETAL STIFFNESS
  3. TRAMADOL. [Concomitant]
     Active Substance: TRAMADOL
     Indication: PAIN
     Dosage: 100 MILLIGRAM DAILY;
     Route: 048
  4. GABAPENTIN ACTAVIS [Suspect]
     Active Substance: GABAPENTIN
     Indication: NEURALGIA
     Dosage: 200 MILLIGRAM DAILY;
     Route: 048
     Dates: start: 2008

REACTIONS (1)
  - Drug ineffective [Unknown]
